FAERS Safety Report 21491517 (Version 3)
Quarter: 2022Q4

REPORT INFORMATION
  Report Type: Spontaneous
  Country: US (occurrence: US)
  Receive Date: 20221021
  Receipt Date: 20221101
  Transmission Date: 20230112
  Serious: No
  Sender: FDA-Public Use
  Company Number: US-PFIZER INC-202201243722

PATIENT
  Age: 57 Year
  Sex: Male
  Weight: 77.11 kg

DRUGS (7)
  1. DOXYCYCLINE HYCLATE [Suspect]
     Active Substance: DOXYCYCLINE HYCLATE
     Indication: Lyme disease
     Dosage: UNK
     Dates: start: 2013
  2. METHSCOPOLAMINE BROMIDE [Concomitant]
     Active Substance: METHSCOPOLAMINE BROMIDE
     Indication: Crohn^s disease
     Dosage: 5 MG, 2X/DAY
  3. QUESTRAN [Concomitant]
     Active Substance: CHOLESTYRAMINE
     Dosage: UNK
     Dates: start: 1983
  4. ATORVASTATIN [Concomitant]
     Active Substance: ATORVASTATIN
     Indication: Blood cholesterol increased
     Dosage: 10 MG, 1X/DAY
  5. OLMESARTAN [Concomitant]
     Active Substance: OLMESARTAN
     Indication: Blood pressure measurement
     Dosage: 10 MG (IT^S 20MG EVEN THAT IS TOO MUCH SO HE)
  6. LEVOTHYROXINE [Concomitant]
     Active Substance: LEVOTHYROXINE
     Indication: Hypothyroidism
     Dosage: 112 UG, 1X/DAY
  7. NAPROXEN [Concomitant]
     Active Substance: NAPROXEN
     Indication: Pain
     Dosage: 500 MG, AS NEEDED

REACTIONS (2)
  - Eczema [Not Recovered/Not Resolved]
  - Off label use [Unknown]

NARRATIVE: CASE EVENT DATE: 20130101
